FAERS Safety Report 7023603-7 (Version None)
Quarter: 2010Q3

REPORT INFORMATION
  Report Type: 
  Country: None (occurrence: None)
  Receive Date: 20100930
  Receipt Date: 20100930
  Transmission Date: 20110219
  Serious: Yes (Other)
  Sender: FDA-Public Use
  Company Number: None

PATIENT
  Age: 11 Year
  Sex: Male
  Weight: 34.0198 kg

DRUGS (2)
  1. SINGULAIR [Suspect]
     Indication: ASTHMA
     Dosage: 1 TABLET EVERY DAY PO
     Route: 048
     Dates: start: 20100405, end: 20100601
  2. SINGULAIR [Suspect]
     Indication: ASTHMA
     Dosage: 1 TABLET EVERY DAY PO
     Route: 048
     Dates: start: 20100927, end: 20100928

REACTIONS (5)
  - EPISTAXIS [None]
  - HALLUCINATION [None]
  - INSOMNIA [None]
  - SLEEP TERROR [None]
  - SOMNOLENCE [None]
